FAERS Safety Report 8547025-2 (Version None)
Quarter: 2012Q3

REPORT INFORMATION
  Report Type: 
  Country: None (occurrence: None)
  Receive Date: 20120727
  Receipt Date: 20120309
  Transmission Date: 20120928
  Serious: No
  Sender: FDA-Public Use
  Company Number: US-ASTRAZENECA-2012SE16863

PATIENT
  Sex: Male

DRUGS (17)
  1. SEROQUEL XR [Suspect]
     Indication: PSYCHOTIC BEHAVIOUR
     Route: 048
     Dates: start: 20080101
  2. SEROQUEL XR [Suspect]
     Indication: PARANOIA
     Route: 048
     Dates: start: 20080101
  3. SEROQUEL XR [Suspect]
     Indication: SCHIZOAFFECTIVE DISORDER
     Route: 048
     Dates: start: 20080101
  4. SEROQUEL XR [Suspect]
     Indication: AFFECTIVE DISORDER
     Route: 048
     Dates: start: 20080101
  5. CLONAZEPAM [Concomitant]
     Dosage: 1-2 MG PER DAY
  6. SEROQUEL XR [Suspect]
     Route: 048
  7. SEROQUEL XR [Suspect]
     Route: 048
  8. SEROQUEL XR [Suspect]
     Indication: ANXIETY
     Route: 048
     Dates: start: 20080101
  9. SEROQUEL XR [Suspect]
     Indication: DEPENDENCE
     Route: 048
     Dates: start: 20080101
  10. SEROQUEL XR [Suspect]
     Indication: PANIC ATTACK
     Route: 048
     Dates: start: 20080101
  11. SEROQUEL XR [Suspect]
     Route: 048
  12. SEROQUEL XR [Suspect]
     Route: 048
  13. SEROQUEL XR [Suspect]
     Route: 048
  14. SEROQUEL XR [Suspect]
     Route: 048
  15. SEROQUEL XR [Suspect]
     Route: 048
  16. SEROQUEL XR [Suspect]
     Route: 048
  17. SEROQUEL XR [Suspect]
     Indication: INSOMNIA
     Route: 048
     Dates: start: 20080101

REACTIONS (15)
  - HYPERSENSITIVITY [None]
  - PRURITUS [None]
  - OFF LABEL USE [None]
  - PANIC ATTACK [None]
  - DRUG INTOLERANCE [None]
  - BLOOD CHOLESTEROL INCREASED [None]
  - DRUG INEFFECTIVE FOR UNAPPROVED INDICATION [None]
  - MUSCLE TIGHTNESS [None]
  - WEIGHT INCREASED [None]
  - CHEST PAIN [None]
  - VOMITING [None]
  - INSOMNIA [None]
  - HYPERTENSION [None]
  - NAUSEA [None]
  - DYSPNOEA [None]
